FAERS Safety Report 13932435 (Version 1)
Quarter: 2017Q3

REPORT INFORMATION
  Report Type: Spontaneous
  Country: US (occurrence: US)
  Receive Date: 20170904
  Receipt Date: 20170904
  Transmission Date: 20171127
  Serious: Yes (Hospitalization, Other)
  Sender: FDA-Public Use
  Company Number: US-JNJFOC-20170818977

PATIENT
  Sex: Male

DRUGS (1)
  1. DARZALEX [Suspect]
     Active Substance: DARATUMUMAB
     Indication: MYELODYSPLASTIC SYNDROME
     Route: 065

REACTIONS (5)
  - Fatigue [Not Recovered/Not Resolved]
  - Off label use [Unknown]
  - Hospitalisation [Not Recovered/Not Resolved]
  - Product use in unapproved indication [Unknown]
  - Blood glucose increased [Not Recovered/Not Resolved]

NARRATIVE: CASE EVENT DATE: 20170814
